FAERS Safety Report 8004072-7 (Version None)
Quarter: 2011Q4

REPORT INFORMATION
  Report Type: 
  Country: None (occurrence: None)
  Receive Date: 20111222
  Receipt Date: 20111219
  Transmission Date: 20120403
  Serious: Yes (Death, Life-Threatening, Other)
  Sender: FDA-Public Use
  Company Number: PE-ASTRAZENECA-2011SE75389

PATIENT
  Age: 91 Year
  Sex: Female

DRUGS (1)
  1. BUDESONIDE [Suspect]
     Indication: ASTHMA
     Dosage: 640 UG DAILY
     Route: 055
     Dates: start: 20110603

REACTIONS (4)
  - URINARY TRACT INFECTION [None]
  - SEPTIC SHOCK [None]
  - RESPIRATORY FAILURE [None]
  - PNEUMONIA [None]
